FAERS Safety Report 9639505 (Version 2)
Quarter: 2013Q4

REPORT INFORMATION
  Report Type: Report from Study
  Country: CA (occurrence: CA)
  Receive Date: 20131023
  Receipt Date: 20131023
  Transmission Date: 20140711
  Serious: Yes (Hospitalization, Other)
  Sender: FDA-Public Use
  Company Number: CA-ROCHE-1184618

PATIENT
  Sex: Female
  Weight: 121 kg

DRUGS (8)
  1. ACTEMRA [Suspect]
     Indication: RHEUMATOID ARTHRITIS
     Route: 042
     Dates: start: 20110405
  2. METFORMIN [Concomitant]
  3. INSULIN [Concomitant]
  4. NORVASC [Concomitant]
  5. FOLIC ACID [Concomitant]
  6. ACETYLSALICYLIC ACID [Concomitant]
  7. LIPITOR [Concomitant]
  8. METHOTREXATE [Concomitant]

REACTIONS (6)
  - Pneumonia [Not Recovered/Not Resolved]
  - Cardiac failure congestive [Unknown]
  - Kidney infection [Unknown]
  - Malaise [Unknown]
  - Weight increased [Not Recovered/Not Resolved]
  - Nasopharyngitis [Unknown]
